FAERS Safety Report 13075503 (Version 1)
Quarter: 2016Q4

REPORT INFORMATION
  Report Type: Spontaneous
  Country: FR (occurrence: FR)
  Receive Date: 20161230
  Receipt Date: 20161230
  Transmission Date: 20170207
  Serious: Yes (Other)
  Sender: FDA-Public Use
  Company Number: FR-GUERBET LLC-1061411

PATIENT
  Age: 17 Year
  Sex: Female

DRUGS (2)
  1. BETADINE [Concomitant]
     Active Substance: POVIDONE-IODINE
  2. OPTIRAY [Suspect]
     Active Substance: IOVERSOL
     Indication: COMPUTERISED TOMOGRAM
     Route: 042
     Dates: start: 20161122, end: 20161122

REACTIONS (3)
  - Erythema [Unknown]
  - Urticaria [Unknown]
  - Generalised oedema [Unknown]

NARRATIVE: CASE EVENT DATE: 20161122
